FAERS Safety Report 5585486-1 (Version None)
Quarter: 2008Q1

REPORT INFORMATION
  Report Type: 
  Country: None (occurrence: None)
  Receive Date: 20080104
  Receipt Date: 20071209
  Transmission Date: 20080703
  Serious: Yes (Hospitalization)
  Sender: FDA-Public Use
  Company Number: 2007S1013106

PATIENT
  Age: 60 Year
  Sex: Male

DRUGS (5)
  1. WARFARIN SODIUM [Suspect]
     Indication: DEEP VEIN THROMBOSIS
  2. WARFARIN SODIUM [Suspect]
     Indication: PULMONARY EMBOLISM
  3. HEPARIN [Suspect]
     Indication: DEEP VEIN THROMBOSIS
  4. HEPARIN [Suspect]
     Indication: THROMBOSIS PROPHYLAXIS
  5. ANESTHETICS, GENERAL (ANESTHETICS, GENERAL) [Suspect]
     Indication: ANAESTHESIA

REACTIONS (5)
  - ANAEMIA [None]
  - DEEP VEIN THROMBOSIS [None]
  - GANGRENE [None]
  - LEG AMPUTATION [None]
  - RENAL CELL CARCINOMA [None]
